FAERS Safety Report 21626851 (Version 2)
Quarter: 2022Q4

REPORT INFORMATION
  Report Type: Spontaneous
  Country: US (occurrence: US)
  Receive Date: 20221122
  Receipt Date: 20221219
  Transmission Date: 20230112
  Serious: No
  Sender: FDA-Public Use
  Company Number: US-ORGANON-O2210USA002513

PATIENT
  Sex: Female
  Weight: 86.18 kg

DRUGS (3)
  1. NEXPLANON [Suspect]
     Active Substance: ETONOGESTREL
     Indication: Contraception
     Dosage: 1 ROD (68 MILLIGRAM) IN LEFT ARM
     Route: 059
     Dates: start: 20220907, end: 20221025
  2. NEXPLANON [Concomitant]
     Active Substance: ETONOGESTREL
     Indication: Contraception
     Dosage: 1 ROD (68 MILLIGRAM) IN LEFT UPPER ARM
     Route: 059
  3. NEXPLANON [Concomitant]
     Active Substance: ETONOGESTREL
     Dosage: 1 ROD (68 MILLIGRAM) IN LEFT UPPER ARM
     Route: 059
     Dates: end: 20220907

REACTIONS (5)
  - Peripheral swelling [Unknown]
  - Implant site pain [Unknown]
  - Device breakage [Recovered/Resolved]
  - Complication of device removal [Recovered/Resolved]
  - Device kink [Recovered/Resolved]

NARRATIVE: CASE EVENT DATE: 20220101
